FAERS Safety Report 7559153-9 (Version None)
Quarter: 2011Q2

REPORT INFORMATION
  Report Type: 
  Country: None (occurrence: None)
  Receive Date: 20110621
  Receipt Date: 20110615
  Transmission Date: 20111010
  Serious: Yes (Other)
  Sender: FDA-Public Use
  Company Number: US-PFIZER INC-2011094294

PATIENT
  Sex: Female
  Weight: 54.422 kg

DRUGS (4)
  1. REVATIO [Suspect]
     Dosage: 20 MG, 2X/DAY
     Dates: start: 20110101
  2. DRONEDARONE HCL [Suspect]
     Indication: ATRIAL FIBRILLATION
     Dosage: 400 MG, 2X/DAY
     Route: 048
     Dates: start: 20101101
  3. REVATIO [Suspect]
     Indication: PULMONARY ARTERIAL HYPERTENSION
     Dosage: 20 MG, 1X/DAY
     Route: 048
     Dates: start: 20110301
  4. REVATIO [Suspect]
     Dosage: 20 MG, 3X/DAY
     Dates: start: 20110101

REACTIONS (2)
  - DYSPEPSIA [None]
  - PALPITATIONS [None]
